FAERS Safety Report 8421319-3 (Version None)
Quarter: 2012Q2

REPORT INFORMATION
  Report Type: 
  Country: None (occurrence: None)
  Receive Date: 20120608
  Receipt Date: 20120531
  Transmission Date: 20120825
  Serious: Yes (Other)
  Sender: FDA-Public Use
  Company Number: PHHY2012JP026920

PATIENT
  Sex: Female
  Weight: 69 kg

DRUGS (12)
  1. NEORAL [Suspect]
     Dosage: 125 MG, DAILY
     Route: 048
     Dates: start: 20101029, end: 20101118
  2. NEORAL [Suspect]
     Dosage: 50 MG, UNK
     Dates: start: 20110506, end: 20110519
  3. PREDNISOLONE [Suspect]
     Dosage: 30 MG, UNK
     Route: 048
     Dates: start: 20110311, end: 20110324
  4. NEORAL [Suspect]
     Dosage: 100 MG DAILY
     Route: 048
     Dates: start: 20101119, end: 20110113
  5. PREDNISOLONE [Suspect]
     Dosage: 20 MG, UNK
     Route: 048
     Dates: start: 20110204, end: 20110310
  6. PREDNISOLONE [Suspect]
     Dosage: 20 MG, UNK
     Route: 048
     Dates: start: 20110325, end: 20110616
  7. PREDNISOLONE [Suspect]
     Dosage: 20 MG, UNK
     Route: 048
     Dates: start: 20101015, end: 20101028
  8. NEORAL [Suspect]
     Dosage: 25 MG, UNK
     Dates: start: 20110520, end: 20110602
  9. PREDNISOLONE [Suspect]
     Dosage: 12.5 MG, UNK
     Route: 048
     Dates: start: 20101029, end: 20110203
  10. NEORAL [Suspect]
     Dosage: 75 MG, DAILY
     Route: 048
     Dates: start: 20110114, end: 20110505
  11. NEORAL [Suspect]
     Indication: NEPHROTIC SYNDROME
     Dosage: 150 MG DAILY
     Route: 048
     Dates: start: 20100824, end: 20101028
  12. PREDNISOLONE [Suspect]
     Indication: NEPHROTIC SYNDROME
     Dosage: 7.5 MG, UNK
     Route: 048
     Dates: start: 20100824, end: 20101014

REACTIONS (6)
  - FOETAL GROWTH RESTRICTION [None]
  - PRE-ECLAMPSIA [None]
  - PLACENTAL DYSPLASIA [None]
  - UTERINE HYPOPLASIA [None]
  - MATERNAL EXPOSURE DURING PREGNANCY [None]
  - NEPHROTIC SYNDROME [None]
